FAERS Safety Report 5316297-X (Version None)
Quarter: 2007Q2

REPORT INFORMATION
  Report Type: 
  Country: None (occurrence: None)
  Receive Date: 20070503
  Receipt Date: 20070424
  Transmission Date: 20071010
  Serious: Yes (Hospitalization)
  Sender: FDA-Public Use
  Company Number: GB-ABBOTT-07P-167-0364336-00

PATIENT
  Sex: Male

DRUGS (9)
  1. VALPROATE SODIUM [Suspect]
     Indication: PARTIAL SEIZURES
     Route: 048
     Dates: start: 20061101
  2. VALPROATE SODIUM [Suspect]
     Route: 048
  3. VALPROATE SODIUM [Suspect]
     Route: 048
  4. VALPROATE SODIUM [Suspect]
     Route: 048
  5. CITALOPRAM HYDROBROMIDE [Suspect]
     Indication: DEPRESSION
     Route: 048
     Dates: start: 20070301, end: 20070301
  6. ACETYLSALICYLIC ACID SRT [Concomitant]
     Indication: CEREBROVASCULAR ACCIDENT
     Route: 048
  7. DIGOXIN [Concomitant]
     Indication: ATRIAL FIBRILLATION
     Route: 048
  8. CLINUTREN 1.5 [Concomitant]
     Indication: DRUG USE FOR UNKNOWN INDICATION
     Route: 048
  9. RAMIPRIL [Concomitant]
     Indication: BLOOD PRESSURE
     Route: 048

REACTIONS (2)
  - HYPONATRAEMIA [None]
  - MENTAL DISORDER [None]
